FAERS Safety Report 5862985-6 (Version None)
Quarter: 2008Q3

REPORT INFORMATION
  Report Type: 
  Country: None (occurrence: None)
  Receive Date: 20080828
  Receipt Date: 20080826
  Transmission Date: 20090109
  Serious: Yes (Other)
  Sender: FDA-Public Use
  Company Number: B0534532A

PATIENT
  Age: 75 Year
  Sex: Male

DRUGS (1)
  1. AVODART [Suspect]
     Route: 065
     Dates: start: 20080801, end: 20080820

REACTIONS (2)
  - ALOPECIA [None]
  - VISUAL IMPAIRMENT [None]
